FAERS Safety Report 17706920 (Version 1)
Quarter: 2020Q2

REPORT INFORMATION
  Report Type: Spontaneous
  Country: US (occurrence: US)
  Receive Date: 20200424
  Receipt Date: 20200424
  Transmission Date: 20200714
  Serious: Yes (Other)
  Sender: FDA-Public Use
  Company Number: US-ALLERGAN-2013027US

PATIENT
  Sex: Male

DRUGS (7)
  1. VRAYLAR [Suspect]
     Active Substance: CARIPRAZINE
     Indication: SUICIDAL BEHAVIOUR
  2. 5-HTP (OXITRIPTAN) [Suspect]
     Active Substance: OXITRIPTAN
     Indication: PRODUCT USED FOR UNKNOWN INDICATION
  3. POTASSIUM [Concomitant]
     Active Substance: POTASSIUM
  4. VRAYLAR [Suspect]
     Active Substance: CARIPRAZINE
     Indication: BIPOLAR I DISORDER
     Dosage: 1.5 MG, QD
     Dates: start: 202003
  5. ASHWAGANDA [Suspect]
     Active Substance: HERBALS
     Indication: PRODUCT USED FOR UNKNOWN INDICATION
  6. VRAYLAR [Suspect]
     Active Substance: CARIPRAZINE
     Indication: DEPRESSION
  7. GABBA [Suspect]
     Active Substance: UNSPECIFIED INGREDIENT
     Indication: PRODUCT USED FOR UNKNOWN INDICATION

REACTIONS (11)
  - Anxiety [Recovered/Resolved]
  - Withdrawal syndrome [Recovered/Resolved]
  - Suffocation feeling [Recovered/Resolved]
  - Pharyngeal swelling [Recovered/Resolved]
  - Myocardial infarction [Recovered/Resolved]
  - Respiratory rate decreased [Recovered/Resolved]
  - Throat tightness [Recovered/Resolved]
  - Panic attack [Recovered/Resolved]
  - Therapy cessation [Unknown]
  - Feeling of body temperature change [Recovered/Resolved]
  - Narcolepsy [Recovered/Resolved]

NARRATIVE: CASE EVENT DATE: 202003
